FAERS Safety Report 5086236-8 (Version None)
Quarter: 2006Q3

REPORT INFORMATION
  Report Type: 
  Country: None (occurrence: None)
  Receive Date: 20060821
  Receipt Date: 20060821
  Transmission Date: 20061208
  Serious: No
  Sender: FDA-Public Use
  Company Number: None

PATIENT

DRUGS (2)
  1. LOPRESSOR [Suspect]
     Dosage: INJECTABLE
  2. LIORESAL [Suspect]
     Dosage: INJECTABLE

REACTIONS (3)
  - DRUG DISPENSING ERROR [None]
  - INTERCEPTED DRUG DISPENSING ERROR [None]
  - MEDICATION ERROR [None]
